FAERS Safety Report 5943668-0 (Version None)
Quarter: 2008Q4

REPORT INFORMATION
  Report Type: 
  Country: None (occurrence: None)
  Receive Date: 20081106
  Receipt Date: 20081031
  Transmission Date: 20090506
  Serious: Yes (Hospitalization)
  Sender: FDA-Public Use
  Company Number: JP-JNJFOC-20081005889

PATIENT
  Age: 32 Year
  Sex: Female

DRUGS (3)
  1. CRAVIT [Suspect]
     Indication: PNEUMONIA MYCOPLASMAL
     Route: 048
  2. PA [Suspect]
     Indication: PNEUMONIA MYCOPLASMAL
     Route: 048
  3. MUCODYNE [Suspect]
     Indication: PNEUMONIA MYCOPLASMAL
     Route: 048

REACTIONS (4)
  - CONJUNCTIVAL OEDEMA [None]
  - DRUG ERUPTION [None]
  - FACE OEDEMA [None]
  - GINGIVAL OEDEMA [None]
